FAERS Safety Report 6552438-4 (Version None)
Quarter: 2010Q1

REPORT INFORMATION
  Report Type: 
  Country: None (occurrence: None)
  Receive Date: 20100126
  Receipt Date: 20100120
  Transmission Date: 20100710
  Serious: Yes (Other)
  Sender: FDA-Public Use
  Company Number: AU-ROXANE LABORATORIES, INC.-2010-RO-00058RO

PATIENT
  Age: 74 Year
  Sex: Male

DRUGS (8)
  1. AMLODIPINE [Suspect]
     Dosage: 10 MG
  2. AMLODIPINE [Suspect]
  3. IMATINIB MESYLATE [Suspect]
     Indication: CHRONIC MYELOID LEUKAEMIA
     Dosage: 800 MG
  4. IMATINIB MESYLATE [Suspect]
     Dosage: 400 MG
  5. IMATINIB MESYLATE [Suspect]
     Dosage: 600 MG
  6. PERINDOPRIL [Suspect]
  7. ATORVASTATIN [Suspect]
     Dosage: 40 MG
  8. DIURETICS [Concomitant]
     Indication: DRUG TOXICITY

REACTIONS (6)
  - AXONAL NEUROPATHY [None]
  - DRUG INTERACTION [None]
  - DRUG TOXICITY [None]
  - NAUSEA [None]
  - NEUROPATHY PERIPHERAL [None]
  - PALPITATIONS [None]
